FAERS Safety Report 5848141-6 (Version None)
Quarter: 2008Q3

REPORT INFORMATION
  Report Type: 
  Country: None (occurrence: None)
  Receive Date: 20080818
  Receipt Date: 20080808
  Transmission Date: 20090109
  Serious: Yes (Hospitalization)
  Sender: FDA-Public Use
  Company Number: A0713325A

PATIENT
  Age: 61 Year
  Sex: Male

DRUGS (5)
  1. AVANDIA [Suspect]
     Indication: TYPE 2 DIABETES MELLITUS
     Route: 048
     Dates: start: 20020101, end: 20071001
  2. GLUCOPHAGE [Concomitant]
     Dosage: 1000MG PER DAY
     Route: 048
  3. ACTOS [Concomitant]
     Dosage: 4MG PER DAY
     Route: 048
  4. EFFEXOR XR [Concomitant]
     Dosage: 150MG PER DAY
     Route: 048
  5. ALTACE [Concomitant]
     Dosage: 5MG PER DAY
     Route: 048

REACTIONS (20)
  - ANXIETY [None]
  - ARTHROPATHY [None]
  - CHEST PAIN [None]
  - CORONARY ARTERY DISEASE [None]
  - CORONARY ARTERY STENOSIS [None]
  - DEPRESSION [None]
  - DYSPNOEA [None]
  - DYSPNOEA EXERTIONAL [None]
  - ECONOMIC PROBLEM [None]
  - ELECTROCARDIOGRAM POOR R-WAVE PROGRESSION [None]
  - EMOTIONAL DISTRESS [None]
  - FATIGUE [None]
  - INJURY [None]
  - INSOMNIA [None]
  - MEMORY IMPAIRMENT [None]
  - MYOCARDIAL INFARCTION [None]
  - PALLOR [None]
  - RENAL FAILURE [None]
  - SINUS BRADYCARDIA [None]
  - STRESS [None]
